FAERS Safety Report 13658378 (Version 4)
Quarter: 2017Q3

REPORT INFORMATION
  Report Type: Spontaneous
  Country: KR (occurrence: KR)
  Receive Date: 20170616
  Receipt Date: 20170824
  Transmission Date: 20171127
  Serious: No
  Sender: FDA-Public Use
  Company Number: KR-009507513-1703KOR000872

PATIENT
  Age: 86 Year
  Sex: Female

DRUGS (28)
  1. ALOXI [Concomitant]
     Active Substance: PALONOSETRON HYDROCHLORIDE
     Indication: PROPHYLAXIS OF NAUSEA AND VOMITING
     Dosage: 0.25 MG, ONCE
     Route: 042
     Dates: start: 20161116, end: 20161116
  2. ATIVAN [Concomitant]
     Active Substance: LORAZEPAM
     Indication: DELIRIUM
     Dosage: 1 TABLET, QD
     Route: 048
  3. TRAMADOL HYDROCHLORIDE. [Concomitant]
     Active Substance: TRAMADOL HYDROCHLORIDE
     Indication: PAIN PROPHYLAXIS
     Dosage: 50 MG, QD
     Route: 042
     Dates: start: 20161104, end: 20161106
  4. TRAMADOL HYDROCHLORIDE. [Concomitant]
     Active Substance: TRAMADOL HYDROCHLORIDE
     Dosage: 50 MG, ONCE
     Route: 042
     Dates: start: 20161120, end: 20161120
  5. POLYBUTINE [Concomitant]
     Indication: PROPHYLAXIS
     Dosage: 1 TABLET, TID
     Route: 048
     Dates: start: 20161108, end: 20161119
  6. ACETAMINOPHEN. [Concomitant]
     Active Substance: ACETAMINOPHEN
     Indication: PAIN PROPHYLAXIS
     Dosage: 500 MG, TID
     Route: 048
     Dates: start: 20161108, end: 20161122
  7. SOLONDO [Concomitant]
     Active Substance: PREDNISOLONE
     Indication: PROPHYLAXIS OF NAUSEA AND VOMITING
     Dosage: 11 TABLET, QD
     Route: 048
     Dates: start: 20161116, end: 20161120
  8. HALOPERIDOL. [Concomitant]
     Active Substance: HALOPERIDOL
     Indication: DELIRIUM
     Dosage: 2.5 MG, QD
     Route: 030
     Dates: start: 20161111, end: 20161122
  9. INVANZ [Concomitant]
     Active Substance: ERTAPENEM SODIUM
     Indication: PNEUMONIA
  10. LASIX [Concomitant]
     Active Substance: FUROSEMIDE
     Indication: PROPHYLAXIS
     Dosage: 40 MG, QD
     Route: 042
     Dates: start: 20161102, end: 20161104
  11. MEDILAC S [Concomitant]
     Indication: PROPHYLAXIS
     Dosage: 1 CAPSULE, TID
     Route: 048
     Dates: start: 20161108, end: 20161119
  12. NEULASTA [Concomitant]
     Active Substance: PEGFILGRASTIM
     Indication: PROPHYLAXIS
     Dosage: 6 MG, ONCE
     Route: 058
     Dates: start: 20161119, end: 20161119
  13. VINCRISTINE SULFATE. [Concomitant]
     Active Substance: VINCRISTINE SULFATE
     Indication: CHEMOTHERAPY
     Dosage: 1 MG, ONCE
     Route: 042
     Dates: start: 20161116, end: 20161116
  14. CORTISOLU [Concomitant]
     Active Substance: HYDROCORTISONE SODIUM SUCCINATE
     Indication: PROPHYLAXIS OF NAUSEA AND VOMITING
     Dosage: 100 MG, ONCE
     Route: 042
     Dates: start: 20161116, end: 20161116
  15. FLAGYL [Concomitant]
     Active Substance: METRONIDAZOLE\METRONIDAZOLE HYDROCHLORIDE
     Indication: PROPHYLAXIS
     Dosage: 500 MG, TID
     Route: 042
     Dates: start: 20161102, end: 20161106
  16. EMEND (FOSAPREPITANT DIMEGLUMINE) [Suspect]
     Active Substance: FOSAPREPITANT DIMEGLUMINE
     Indication: PROPHYLAXIS OF NAUSEA AND VOMITING
     Dosage: 150 MG, ONCE, CYCLE 1
     Route: 042
     Dates: start: 20161116, end: 20161116
  17. ATIVAN [Concomitant]
     Active Substance: LORAZEPAM
     Indication: DELIRIUM
     Dosage: 2 MG, QD
     Route: 030
     Dates: start: 20161121, end: 20161122
  18. ENDOXAN [Concomitant]
     Active Substance: CYCLOPHOSPHAMIDE
     Indication: CHEMOTHERAPY
     Dosage: 735 MG, ONCE
     Route: 042
     Dates: start: 20161116, end: 20161116
  19. ADRIAMYCIN [Concomitant]
     Active Substance: DOXORUBICIN HYDROCHLORIDE
     Indication: CHEMOTHERAPY
     Dosage: 35 MG, ONCE
     Route: 042
     Dates: start: 20161116, end: 20161116
  20. MABTHERA [Concomitant]
     Active Substance: RITUXIMAB
     Indication: CHEMOTHERAPY
     Dosage: 500 MG, ONCE
     Route: 042
     Dates: start: 20161116, end: 20161116
  21. ATIVAN [Concomitant]
     Active Substance: LORAZEPAM
     Indication: DELIRIUM
     Dosage: 1 MG, QD
     Route: 030
     Dates: start: 20161111, end: 20161116
  22. FLASINYL [Concomitant]
     Indication: INFECTION PROPHYLAXIS
     Dosage: 2 TABLET, BID
     Route: 048
     Dates: start: 20161108, end: 20161118
  23. SMECTA [Concomitant]
     Active Substance: MONTMORILLONITE
     Indication: PROPHYLAXIS
     Dosage: 20 ML, TID
     Route: 048
     Dates: start: 20161108, end: 20161109
  24. RISPERIDONE. [Concomitant]
     Active Substance: RISPERIDONE
     Indication: DELIRIUM
     Dosage: 1 TABLET, QD
     Route: 048
  25. FLAGYL [Concomitant]
     Active Substance: METRONIDAZOLE\METRONIDAZOLE HYDROCHLORIDE
     Indication: INFECTION
  26. INVANZ [Concomitant]
     Active Substance: ERTAPENEM SODIUM
     Indication: PROPHYLAXIS
     Dosage: 0.5 G, QD
     Route: 042
     Dates: start: 20161102, end: 20161114
  27. SEROQUEL [Concomitant]
     Active Substance: QUETIAPINE FUMARATE
     Indication: DELIRIUM
     Dosage: 50 MG, QD
     Route: 048
     Dates: start: 20161108
  28. CARDIOXANE [Concomitant]
     Active Substance: DEXRAZOXANE HYDROCHLORIDE
     Indication: CARDIOVASCULAR EVENT PROPHYLAXIS
     Dosage: 850 MG, ONCE
     Route: 042
     Dates: start: 20161116, end: 20161116

REACTIONS (1)
  - Pain [Recovered/Resolved]

NARRATIVE: CASE EVENT DATE: 20161121
